FAERS Safety Report 15488590 (Version 1)
Quarter: 2018Q4

REPORT INFORMATION
  Report Type: Spontaneous
  Country: AR (occurrence: AR)
  Receive Date: 20181011
  Receipt Date: 20181011
  Transmission Date: 20190205
  Serious: Yes (Other)
  Sender: FDA-Public Use
  Company Number: AR-BIOMARINAP-AR-2018-120203

PATIENT
  Age: 3 Year
  Sex: Female

DRUGS (8)
  1. BRINEURA [Suspect]
     Active Substance: CERLIPONASE ALFA
     Indication: NEURONAL CEROID LIPOFUSCINOSIS
     Dosage: UNK
     Route: 037
     Dates: start: 2017
  2. CLOBAZAM. [Concomitant]
     Active Substance: CLOBAZAM
     Indication: SEIZURE
  3. FENITOINA                          /00017401/ [Concomitant]
     Active Substance: PHENYTOIN
     Indication: SEIZURE
  4. TOPIRAMATE. [Concomitant]
     Active Substance: TOPIRAMATE
     Indication: SEIZURE
  5. LEVETIRACETAM. [Concomitant]
     Active Substance: LEVETIRACETAM
     Indication: SEIZURE
  6. EPAMIN                             /00017401/ [Concomitant]
     Indication: EYE MOVEMENT DISORDER
  7. EPAMIN                             /00017401/ [Concomitant]
     Indication: SEIZURE
  8. VALPROIC ACID. [Concomitant]
     Active Substance: VALPROIC ACID
     Indication: SEIZURE
     Dosage: UNK, QD

REACTIONS (4)
  - Hypotonia [Unknown]
  - Visual acuity reduced [Unknown]
  - Myoclonus [Unknown]
  - Clonus [Unknown]
